FAERS Safety Report 6457104-1 (Version None)
Quarter: 2009Q4

REPORT INFORMATION
  Report Type: 
  Country: None (occurrence: None)
  Receive Date: 20091125
  Receipt Date: 20091120
  Transmission Date: 20100525
  Serious: Yes (Hospitalization)
  Sender: FDA-Public Use
  Company Number: B0598223A

PATIENT
  Sex: Male

DRUGS (10)
  1. LAMICTAL [Suspect]
     Indication: BIPOLAR DISORDER
     Dosage: 25MG PER DAY
     Route: 048
     Dates: start: 20090930, end: 20091013
  2. RIVOTRIL [Concomitant]
     Indication: EPILEPSY
     Dosage: 1.5MG PER DAY
     Route: 048
  3. TEGRETOL [Concomitant]
     Indication: EPILEPSY
     Route: 048
  4. UNKNOWN DRUG [Concomitant]
     Indication: CONSTIPATION
     Dosage: 5MG PER DAY
     Route: 048
  5. BLOPRESS [Concomitant]
     Indication: HYPERTENSION
     Dosage: 8MG PER DAY
     Route: 048
  6. FOLIAMIN [Concomitant]
     Indication: FOLATE DEFICIENCY
     Dosage: 15MG PER DAY
     Route: 048
  7. ROHYPNOL [Concomitant]
     Indication: INSOMNIA
     Dosage: .5MG PER DAY
     Route: 048
  8. RISPERDAL [Concomitant]
     Indication: DRUG USE FOR UNKNOWN INDICATION
     Dosage: 2MG PER DAY
     Route: 048
  9. VEGETAMIN [Concomitant]
     Indication: DRUG USE FOR UNKNOWN INDICATION
     Dosage: .5U PER DAY
     Route: 048
  10. LEBELBON [Concomitant]
     Indication: DRUG USE FOR UNKNOWN INDICATION
     Dosage: 9U PER DAY
     Route: 048

REACTIONS (2)
  - ALTERED STATE OF CONSCIOUSNESS [None]
  - LOSS OF CONSCIOUSNESS [None]
